FAERS Safety Report 12081043 (Version 4)
Quarter: 2020Q1

REPORT INFORMATION
  Report Type: Report from Study
  Country: CO (occurrence: CO)
  Receive Date: 20160216
  Receipt Date: 20200210
  Transmission Date: 20200409
  Serious: Yes (Death, Hospitalization, Other)
  Sender: FDA-Public Use
  Company Number: CO-JNJFOC-20160208386

PATIENT
  Age: 23 Year
  Sex: Male
  Weight: 68 kg

DRUGS (1)
  1. RISPERDAL CONSTA [Suspect]
     Active Substance: RISPERIDONE
     Indication: BIPOLAR DISORDER
     Route: 030
     Dates: start: 20151114, end: 20160222

REACTIONS (9)
  - Drug abuse [Not Recovered/Not Resolved]
  - Boredom [Not Recovered/Not Resolved]
  - Product storage error [Unknown]
  - Death [Fatal]
  - Intentional self-injury [Not Recovered/Not Resolved]
  - Product dose omission [Unknown]
  - Paranoia [Not Recovered/Not Resolved]
  - Persecutory delusion [Not Recovered/Not Resolved]
  - Depression [Not Recovered/Not Resolved]

NARRATIVE: CASE EVENT DATE: 20160122
